FAERS Safety Report 7390066-1 (Version None)
Quarter: 2011Q2

REPORT INFORMATION
  Report Type: 
  Country: None (occurrence: None)
  Receive Date: 20110401
  Receipt Date: 20110318
  Transmission Date: 20111010
  Serious: Yes (Hospitalization)
  Sender: FDA-Public Use
  Company Number: FR-ALLERGAN-1104518US

PATIENT
  Age: 83 Year
  Sex: Male

DRUGS (8)
  1. EXELON [Concomitant]
     Dosage: 9.5 MG, QD
  2. FLECAINE [Concomitant]
     Dosage: 50 MG, QD
  3. KARDEGIC [Concomitant]
     Dosage: 75 MG, QD
  4. ATARAX [Suspect]
     Dosage: 50 MG, QD
     Route: 048
     Dates: end: 20101228
  5. SERESTA [Concomitant]
     Dosage: 10 MG, QD
  6. MODOPAR [Concomitant]
     Dosage: 125 MG, QID
  7. TROSPIUM CHLORIDE [Suspect]
     Indication: PRODUCT USED FOR UNKNOWN INDICATION
     Dosage: 20 MG, QD
     Route: 048
     Dates: end: 20101228
  8. BISOPROLOL FUMARATE [Concomitant]
     Dosage: 5 MG, QD

REACTIONS (3)
  - DEHYDRATION [None]
  - URINARY RETENTION [None]
  - DIARRHOEA [None]
